FAERS Safety Report 6118064-6 (Version None)
Quarter: 2009Q1

REPORT INFORMATION
  Report Type: 
  Country: None (occurrence: None)
  Receive Date: 20090314
  Receipt Date: 20090205
  Transmission Date: 20090719
  Serious: No
  Sender: FDA-Public Use
  Company Number: US-ABBOTT-09P-163-0502545-00

PATIENT
  Sex: Female

DRUGS (6)
  1. HUMIRA [Suspect]
     Indication: RHEUMATOID ARTHRITIS
     Route: 058
     Dates: start: 20060101
  2. HUMIRA [Suspect]
     Dosage: SYRINGE
     Dates: start: 20040101
  3. NITROGLYCERIN [Concomitant]
     Indication: CHEST PAIN
  4. ELAVIL [Concomitant]
     Indication: DRUG USE FOR UNKNOWN INDICATION
  5. MAXZIDE [Concomitant]
     Indication: DRUG USE FOR UNKNOWN INDICATION
  6. VERELAN [Concomitant]
     Indication: DRUG USE FOR UNKNOWN INDICATION

REACTIONS (3)
  - ACCIDENTAL NEEDLE STICK [None]
  - ANGINA PECTORIS [None]
  - HEADACHE [None]
